FAERS Safety Report 8002577-6 (Version None)
Quarter: 2011Q4

REPORT INFORMATION
  Report Type: 
  Country: None (occurrence: None)
  Receive Date: 20111222
  Receipt Date: 20111212
  Transmission Date: 20120403
  Serious: Yes (Hospitalization, Other)
  Sender: FDA-Public Use
  Company Number: US-AMGEN-US244987

PATIENT
  Age: 46 Year
  Sex: Female
  Weight: 66.213 kg

DRUGS (7)
  1. PHOSLO [Concomitant]
     Dosage: 2001 MG, TID
  2. VALSARTAN [Concomitant]
     Dosage: 320 MG, QD
  3. CARTIA XT [Concomitant]
     Dosage: 180 MG, QD
  4. COLCHICINE [Concomitant]
     Dosage: UNK UNK, UNK
  5. TRAMADOL HCL [Concomitant]
     Dosage: 50 MG, BID
  6. SODIUM BICARBONATE [Concomitant]
     Dosage: 1300 MG, TID
  7. PROCRIT [Suspect]
     Indication: RENAL FAILURE CHRONIC
     Dosage: UNK
     Dates: end: 20100329

REACTIONS (22)
  - ACINETOBACTER INFECTION [None]
  - BRONCHITIS [None]
  - ARRHYTHMIA [None]
  - CARDIOMYOPATHY [None]
  - INFECTION [None]
  - ANAEMIA [None]
  - LYMPHOPENIA [None]
  - MYELODYSPLASTIC SYNDROME [None]
  - HAEMOSIDEROSIS [None]
  - PLATELET COUNT DECREASED [None]
  - TREATMENT NONCOMPLIANCE [None]
  - SEPSIS [None]
  - SHUNT INFECTION [None]
  - ANTI-ERYTHROPOIETIN ANTIBODY POSITIVE [None]
  - APLASIA PURE RED CELL [None]
  - PLASMACYTOSIS [None]
  - NEUTRALISING ANTIBODIES POSITIVE [None]
  - LEUKOCYTOSIS [None]
  - IRON OVERLOAD [None]
  - HOSPITALISATION [None]
  - HAEMOGLOBIN DECREASED [None]
  - CARDIAC FAILURE [None]
